FAERS Safety Report 7464383-0 (Version None)
Quarter: 2011Q1

REPORT INFORMATION
  Report Type: 
  Country: None (occurrence: None)
  Receive Date: 20110302
  Receipt Date: 20101008
  Transmission Date: 20110831
  Serious: Yes (Death)
  Sender: FDA-Public Use
  Company Number: 163-21880-10091752

PATIENT
  Age: 64 Year
  Sex: Male

DRUGS (1)
  1. REVLIMID [Suspect]
     Indication: MULTIPLE MYELOMA
     Dosage: 25 MG, DAILY FOR 21 DAYS EVERY 28 DAYS CYCLE , PO,
     Route: 048
     Dates: start: 20100614

REACTIONS (3)
  - DEATH [None]
  - NEOPLASM PROGRESSION [None]
  - MULTIPLE MYELOMA [None]
